FAERS Safety Report 9895244 (Version 1)
Quarter: 2014Q1

REPORT INFORMATION
  Report Type: Spontaneous
  Country: US (occurrence: US)
  Receive Date: 20140213
  Receipt Date: 20140213
  Transmission Date: 20141002
  Serious: No
  Sender: FDA-Public Use
  Company Number: US-BRISTOL-MYERS SQUIBB COMPANY-17269762

PATIENT
  Age: 56 Year
  Sex: Male

DRUGS (1)
  1. ORENCIA [Suspect]
     Indication: RHEUMATOID ARTHRITIS
     Dosage: LAST INF: AROUND 12DEC12
     Route: 042

REACTIONS (3)
  - Fatigue [Unknown]
  - Abdominal discomfort [Unknown]
  - Therapeutic response decreased [Unknown]
